FAERS Safety Report 5754660-3 (Version None)
Quarter: 2008Q2

REPORT INFORMATION
  Report Type: 
  Country: None (occurrence: None)
  Receive Date: 20080530
  Receipt Date: 20080520
  Transmission Date: 20081010
  Serious: Yes (Life-Threatening)
  Sender: FDA-Public Use
  Company Number: DE-PFIZER INC-2008043703

PATIENT
  Sex: Male
  Weight: 75 kg

DRUGS (1)
  1. CHANTIX [Suspect]
     Indication: SMOKING CESSATION THERAPY
     Dosage: DAILY DOSE:2MG
     Route: 048
     Dates: start: 20070825, end: 20070924

REACTIONS (7)
  - CHILLS [None]
  - DEPRESSION [None]
  - HEADACHE [None]
  - NIGHT SWEATS [None]
  - RESTLESSNESS [None]
  - SUICIDAL IDEATION [None]
  - WEIGHT DECREASED [None]
